FAERS Safety Report 17515979 (Version 2)
Quarter: 2020Q2

REPORT INFORMATION
  Report Type: Spontaneous
  Country: US (occurrence: US)
  Receive Date: 20200309
  Receipt Date: 20200403
  Transmission Date: 20200713
  Serious: No
  Sender: FDA-Public Use
  Company Number: US-ASTRAZENECA-2020SE32494

PATIENT
  Sex: Female

DRUGS (1)
  1. BYDUREON BCISE [Suspect]
     Active Substance: EXENATIDE
     Indication: DIABETES MELLITUS
     Route: 065
     Dates: start: 202001

REACTIONS (5)
  - Injection site swelling [Unknown]
  - Device issue [Unknown]
  - Injection site mass [Unknown]
  - Rash [Unknown]
  - Skin lesion [Not Recovered/Not Resolved]
